FAERS Safety Report 9793830 (Version 1)
Quarter: 2014Q1

REPORT INFORMATION
  Report Type: Spontaneous
  Country: US (occurrence: US)
  Receive Date: 20140102
  Receipt Date: 20140102
  Transmission Date: 20141002
  Serious: No
  Sender: FDA-Public Use
  Company Number: US-AMGEN-USASP2013086803

PATIENT
  Age: 66 Year
  Sex: Female

DRUGS (3)
  1. ENBREL [Suspect]
     Indication: PSORIATIC ARTHROPATHY
     Dosage: 50 MG, QWK
     Route: 065
     Dates: start: 20060101, end: 201306
  2. ENBREL [Suspect]
     Indication: PSORIASIS
  3. METHOTREXATE [Concomitant]
     Dosage: 5 TABS WEEKLY
     Dates: end: 201306

REACTIONS (5)
  - Psoriatic arthropathy [Not Recovered/Not Resolved]
  - Local swelling [Not Recovered/Not Resolved]
  - Cough [Unknown]
  - Psoriasis [Not Recovered/Not Resolved]
  - Bacterial infection [Unknown]
